FAERS Safety Report 20455515 (Version 1)
Quarter: 2022Q1

REPORT INFORMATION
  Report Type: Spontaneous
  Country: SE (occurrence: SE)
  Receive Date: 20220210
  Receipt Date: 20220210
  Transmission Date: 20220423
  Serious: Yes (Other)
  Sender: FDA-Public Use
  Company Number: None

PATIENT
  Age: 2 Year
  Sex: Female
  Weight: 13 kg

DRUGS (2)
  1. VERMOX [Suspect]
     Active Substance: MEBENDAZOLE
     Indication: Enterobiasis
     Dosage: 5ML, 2GGR MED 2 VECKORS MELLANRUM
     Route: 065
     Dates: start: 20201216, end: 20201230
  2. HYDROCORTISONE [Concomitant]
     Active Substance: HYDROCORTISONE
     Indication: Product used for unknown indication
     Route: 065

REACTIONS (3)
  - Vulvovaginal injury [Recovering/Resolving]
  - Constipation [Recovering/Resolving]
  - Rectal fissure [Recovering/Resolving]

NARRATIVE: CASE EVENT DATE: 20201217
